FAERS Safety Report 25751118 (Version 1)
Quarter: 2025Q3

REPORT INFORMATION
  Report Type: Other
  Country: EU (occurrence: EU)
  Receive Date: 20250902
  Receipt Date: 20250902
  Transmission Date: 20251020
  Serious: Yes (Death)
  Sender: EMD SERONO INC
  Company Number: EU-Merck Healthcare KGaA-2025040303

PATIENT
  Age: 74 Year

DRUGS (3)
  1. AVELUMAB [Suspect]
     Active Substance: AVELUMAB
     Indication: Transitional cell carcinoma metastatic
  2. CISPLATIN [Concomitant]
     Active Substance: CISPLATIN
     Indication: Transitional cell carcinoma metastatic
  3. GEMCITABINE [Concomitant]
     Active Substance: GEMCITABINE
     Indication: Transitional cell carcinoma metastatic

REACTIONS (1)
  - Disease progression [Fatal]
